FAERS Safety Report 8861609 (Version 1)
Quarter: 2012Q4

REPORT INFORMATION
  Report Type: Spontaneous
  Country: JP (occurrence: None)
  Receive Date: 20121024
  Receipt Date: 20121024
  Transmission Date: 20130627
  Serious: Yes (Disabling)
  Sender: FDA-Public Use
  Company Number: TCI2012A05905

PATIENT
  Age: 51 Year
  Sex: Female

DRUGS (1)
  1. TAKEPRON [Suspect]
     Indication: REFLUX ESOPHAGITIS
     Route: 048
     Dates: start: 20070313

REACTIONS (1)
  - Visual acuity reduced [None]
